FAERS Safety Report 4587286-8 (Version None)
Quarter: 2005Q1

REPORT INFORMATION
  Report Type: 
  Country: None (occurrence: None)
  Receive Date: 20050215
  Receipt Date: 20050208
  Transmission Date: 20050727
  Serious: Yes (Death, Life-Threatening, Hospitalization)
  Sender: FDA-Public Use
  Company Number: 200409104

PATIENT
  Age: 53 Year
  Sex: Male

DRUGS (10)
  1. STREPTASE [Suspect]
     Indication: ACUTE MYOCARDIAL INFARCTION
     Dosage: 1.5 MIU DAILY IV
     Route: 042
     Dates: start: 20040703, end: 20040703
  2. ASPIRIN [Suspect]
     Indication: ACUTE MYOCARDIAL INFARCTION
     Dosage: 300 MG DAILY PO
     Route: 048
     Dates: start: 20040703, end: 20040703
  3. ENOXAPARIN SODIUM [Suspect]
     Indication: ACUTE MYOCARDIAL INFARCTION
     Dosage: IV
     Route: 042
     Dates: start: 20040703, end: 20040704
  4. SIMVASTATIN [Concomitant]
  5. DULCOLAX [Concomitant]
  6. ATIVAN [Concomitant]
  7. GLIPIZIDE [Concomitant]
  8. PLAVIX [Concomitant]
  9. SIMVASTATIN [Concomitant]
  10. CAPTOPRIL [Concomitant]

REACTIONS (9)
  - CEREBRAL ATROPHY [None]
  - CEREBRAL INFARCTION [None]
  - GASTRIC ULCER [None]
  - GASTROINTESTINAL HAEMORRHAGE [None]
  - HAEMATOCRIT DECREASED [None]
  - HEMIPLEGIA [None]
  - LACUNAR INFARCTION [None]
  - MELAENA [None]
  - THROMBOSIS [None]
